FAERS Safety Report 9801796 (Version 2)
Quarter: 2014Q1

REPORT INFORMATION
  Report Type: Spontaneous
  Country: SE (occurrence: SE)
  Receive Date: 20140107
  Receipt Date: 20140314
  Transmission Date: 20141002
  Serious: Yes (Other)
  Sender: FDA-Public Use
  Company Number: SE-GLAXOSMITHKLINE-B0957835A

PATIENT
  Age: 76 Year
  Sex: Male

DRUGS (10)
  1. ARIXTRA [Suspect]
     Indication: PRODUCT USED FOR UNKNOWN INDICATION
     Route: 065
     Dates: start: 20131020, end: 20131021
  2. CLOPIDOGREL [Suspect]
     Indication: PRODUCT USED FOR UNKNOWN INDICATION
     Route: 065
     Dates: start: 20131020, end: 20131021
  3. ATENOLOL [Concomitant]
  4. CITALOPRAM [Concomitant]
  5. JANUVIA [Concomitant]
  6. LOSARTAN [Concomitant]
  7. METFORMIN [Concomitant]
  8. PANODIL [Concomitant]
     Dosage: 500MG AS REQUIRED
  9. PREDNISOLONE [Concomitant]
  10. TROMBYL [Concomitant]

REACTIONS (1)
  - Haematuria [Unknown]
